FAERS Safety Report 4262960-1 (Version None)
Quarter: 2004Q1

REPORT INFORMATION
  Report Type: 
  Country: None (occurrence: None)
  Receive Date: 20040105
  Receipt Date: 20020814
  Transmission Date: 20041129
  Serious: Yes (Other)
  Sender: FDA-Public Use
  Company Number: US-BRISTOL-MYERS SQUIBB COMPANY-11997004

PATIENT
  Age: 52 Year
  Sex: Female
  Weight: 65 kg

DRUGS (5)
  1. TAXOL [Suspect]
     Indication: BREAST CANCER METASTATIC
     Dosage: INITIAL DOSE 17APR02. ADD'L LOTS: 1A39935 + 1F51548, EXP. JAN-03 AND JUL-03, RESPECTIVELY.
     Dates: start: 20020508, end: 20020508
  2. ESSENTIALE [Concomitant]
     Route: 048
     Dates: start: 20020411
  3. DE-NOL [Concomitant]
     Route: 048
     Dates: start: 20020411
  4. MAALOX [Concomitant]
     Route: 048
     Dates: start: 20020503
  5. BISMUTH [Concomitant]

REACTIONS (3)
  - BREAST CANCER METASTATIC [None]
  - DISEASE PROGRESSION [None]
  - GAMMA-GLUTAMYLTRANSFERASE INCREASED [None]
